FAERS Safety Report 7493969-2 (Version None)
Quarter: 2011Q2

REPORT INFORMATION
  Report Type: 
  Country: None (occurrence: None)
  Receive Date: 20110519
  Receipt Date: 20110519
  Transmission Date: 20111010
  Serious: Yes (Other)
  Sender: FDA-Public Use
  Company Number: None

PATIENT
  Age: 31 Year
  Sex: Male
  Weight: 101.1521 kg

DRUGS (1)
  1. OXYCONTIN [Suspect]
     Indication: PAIN
     Dosage: 40 MG 3X DAILY PO
     Route: 048
     Dates: start: 20101107, end: 20110517

REACTIONS (4)
  - NAUSEA [None]
  - DRUG INEFFECTIVE [None]
  - VOMITING [None]
  - PRODUCT FORMULATION ISSUE [None]
